FAERS Safety Report 5959896-4 (Version None)
Quarter: 2008Q4

REPORT INFORMATION
  Report Type: 
  Country: None (occurrence: None)
  Receive Date: 20081119
  Receipt Date: 20081119
  Transmission Date: 20090506
  Serious: No
  Sender: FDA-Public Use
  Company Number: None

PATIENT
  Age: 56 Year
  Sex: Female
  Weight: 65 kg

DRUGS (10)
  1. ZOLEDRONIC ACID [Suspect]
     Indication: HYPERCALCAEMIA
     Dosage: 4 MG IV X 1
     Route: 042
     Dates: start: 20080603
  2. CEFEPIME [Concomitant]
  3. INSULIN [Concomitant]
  4. METHYLPREDNISOLONE 16MG TAB [Concomitant]
  5. RANITIDINE [Concomitant]
  6. VIT K [Concomitant]
  7. SENNA [Concomitant]
  8. THIAMINE HCL [Concomitant]
  9. CYA [Concomitant]
  10. ETOPOSITE [Concomitant]

REACTIONS (2)
  - BLOOD CALCIUM DECREASED [None]
  - BLOOD PHOSPHORUS DECREASED [None]
